FAERS Safety Report 10257245 (Version 2)
Quarter: 2014Q2

REPORT INFORMATION
  Report Type: Spontaneous
  Country: DE (occurrence: None)
  Receive Date: 20140620
  Receipt Date: 20140626
  Transmission Date: 20141212
  Serious: Yes (Other)
  Sender: FDA-Public Use
  Company Number: AUR-APL-2014-06572

PATIENT
  Age: 74 Year
  Sex: Female

DRUGS (5)
  1. RAMIPRIL 5MG (RAMIPRIL) UNKNOWN, 5MG [Suspect]
     Indication: PRODUCT USED FOR UNKNOWN INDICATION
     Dosage: 5 MG, DAILY, INTAKE SINCE A LONG TIME, ORAL
     Route: 048
     Dates: end: 20140320
  2. TAVOR /00273201/ (LORAZEPAM) [Concomitant]
  3. L-THYROXIN (LEVOTHYROXINE SODIUM) [Concomitant]
  4. METFORMIN (METFORMIN) [Concomitant]
  5. KALINOR /00031402/ (POTASSIUM CHLORIDE) [Concomitant]

REACTIONS (6)
  - Musculoskeletal stiffness [None]
  - Delusion [None]
  - Blood creatine phosphokinase increased [None]
  - Hepatic enzyme increased [None]
  - Posture abnormal [None]
  - Myocardial infarction [None]
